FAERS Safety Report 24214509 (Version 2)
Quarter: 2024Q3

REPORT INFORMATION
  Report Type: Spontaneous
  Country: AU (occurrence: AU)
  Receive Date: 20240815
  Receipt Date: 20240816
  Transmission Date: 20241017
  Serious: Yes (Death, Other)
  Sender: MERCK
  Company Number: AU-JNJFOC-20190414588

PATIENT
  Age: 77 Year
  Sex: Female

DRUGS (5)
  1. TEMOZOLOMIDE [Suspect]
     Active Substance: TEMOZOLOMIDE
     Indication: Ocular lymphoma
  2. IMBRUVICA [Suspect]
     Active Substance: IBRUTINIB
     Indication: Ocular lymphoma
     Dosage: 560 MILLIGRAM
     Route: 048
     Dates: end: 20231220
  3. IMBRUVICA [Suspect]
     Active Substance: IBRUTINIB
     Indication: Central nervous system lymphoma
     Dosage: 420 MILLIGRAM
     Route: 048
  4. METHOTREXATE [Suspect]
     Active Substance: METHOTREXATE
     Indication: Ocular lymphoma
     Route: 031
  5. RITUXIMAB [Suspect]
     Active Substance: RITUXIMAB
     Indication: Ocular lymphoma

REACTIONS (5)
  - Central nervous system lymphoma [Fatal]
  - Pneumocystis jirovecii pneumonia [Fatal]
  - Adverse drug reaction [Unknown]
  - Off label use [Unknown]
  - Product use in unapproved indication [Unknown]
